FAERS Safety Report 9676206 (Version 1)
Quarter: 2013Q4

REPORT INFORMATION
  Report Type: Spontaneous
  Country: TR (occurrence: TR)
  Receive Date: 20131107
  Receipt Date: 20131107
  Transmission Date: 20140711
  Serious: Yes (Other)
  Sender: FDA-Public Use
  Company Number: TR-VERTEX PHARMACEUTICALS INC-2013-010928

PATIENT
  Sex: 0

DRUGS (3)
  1. INCIVO [Suspect]
     Indication: HEPATITIS C
     Route: 065
  2. PEGINTERFERON ALFA [Suspect]
     Indication: HEPATITIS C
     Dosage: DOSAGE FORM: UNSPECIFIED
     Route: 065
  3. RIBAVIRIN [Suspect]
     Indication: HEPATITIS C
     Dosage: DOSAGE FORM: UNSPECIFIED
     Route: 065

REACTIONS (14)
  - Depression [Unknown]
  - Anaemia [Unknown]
  - Insomnia [Unknown]
  - Dizziness [Unknown]
  - Stomatitis [Unknown]
  - Asthenia [Unknown]
  - Cough [Unknown]
  - Urinary tract infection [Unknown]
  - Decreased appetite [Unknown]
  - Anal pruritus [Unknown]
  - Pruritus [Unknown]
  - Proctalgia [Unknown]
  - Nausea [Unknown]
  - Rash [Unknown]
